FAERS Safety Report 14653921 (Version 3)
Quarter: 2018Q2

REPORT INFORMATION
  Report Type: Spontaneous
  Country: US (occurrence: US)
  Receive Date: 20180319
  Receipt Date: 20180613
  Transmission Date: 20180711
  Serious: No
  Sender: FDA-Public Use
  Company Number: US-PFIZER INC-2018110596

PATIENT
  Age: 70 Year
  Sex: Female

DRUGS (6)
  1. SIMVASTATIN. [Concomitant]
     Active Substance: SIMVASTATIN
     Dosage: UNK
  2. IBRANCE [Suspect]
     Active Substance: PALBOCICLIB
     Indication: BREAST CANCER FEMALE
     Dosage: 125 MG, CYCLIC (ONCE DAILY WITH FOOD FOR 21 DAYS, THEN 7 DAYS OFF)
     Route: 048
     Dates: start: 201802
  3. LORAZEPAM. [Concomitant]
     Active Substance: LORAZEPAM
     Dosage: 0.5 MG, UNK
  4. CALCITRATE [Concomitant]
     Active Substance: CALCIUM CITRATE
     Dosage: UNK (315-250 MG)
  5. IBRANCE [Suspect]
     Active Substance: PALBOCICLIB
     Dosage: 100 MG, CYCLIC [TAKE ONE CAPSULE BY MOUTH ONCE DAILY 1-21 OF A 28 DAY CYCLE]
     Route: 048
  6. IBRANCE [Suspect]
     Active Substance: PALBOCICLIB
     Dosage: 75 MG, CYCLIC (TAKE ONE CAPSULE BY MOUTH ONCE DAILY FOR 21 DAYS, THEN 7 DAYS OFF)
     Route: 048

REACTIONS (3)
  - Neutrophil count decreased [Unknown]
  - Fatigue [Not Recovered/Not Resolved]
  - White blood cell count decreased [Unknown]

NARRATIVE: CASE EVENT DATE: 2018
